FAERS Safety Report 9562110 (Version 1)
Quarter: 2013Q3

REPORT INFORMATION
  Report Type: Spontaneous
  Country: SE (occurrence: SE)
  Receive Date: 20130927
  Receipt Date: 20130927
  Transmission Date: 20140515
  Serious: Yes (Hospitalization)
  Sender: FDA-Public Use
  Company Number: SE-PFIZER INC-2013273556

PATIENT
  Age: 68 Year
  Sex: Male

DRUGS (5)
  1. SPIRONOLACTONE [Suspect]
     Dosage: UNK
     Dates: start: 201303
  2. TENORMIN [Suspect]
  3. FURIX [Concomitant]
  4. RENITEC [Concomitant]
  5. NOVORAPID [Concomitant]

REACTIONS (2)
  - Renal failure acute [Unknown]
  - Bradycardia [Unknown]
